FAERS Safety Report 5269876-2 (Version None)
Quarter: 2007Q1

REPORT INFORMATION
  Report Type: 
  Country: None (occurrence: None)
  Receive Date: 20070320
  Receipt Date: 20070308
  Transmission Date: 20070707
  Serious: Yes (Hospitalization)
  Sender: FDA-Public Use
  Company Number: FR-GLAXOSMITHKLINE-B0461466A

PATIENT
  Age: 53 Year
  Sex: Female
  Weight: 68 kg

DRUGS (6)
  1. AUGMENTIN '125' [Suspect]
     Indication: BRONCHITIS
     Route: 048
     Dates: start: 20070105, end: 20070107
  2. OFLOCET [Suspect]
     Indication: BRONCHITIS
     Route: 048
     Dates: start: 20070105, end: 20070107
  3. DEXAMETHASONE [Suspect]
     Dosage: 40MG PER DAY
     Route: 048
     Dates: start: 20061229, end: 20070101
  4. ORELOX [Suspect]
     Indication: BRONCHITIS
     Route: 048
     Dates: start: 20070107, end: 20070112
  5. THALIDOMIDE [Suspect]
     Dosage: 200MG PER DAY
     Route: 048
     Dates: end: 20070119
  6. VELCADE [Suspect]
     Dosage: 2.3MG PER DAY
     Route: 048
     Dates: end: 20070102

REACTIONS (12)
  - ASTHENIA [None]
  - DEHYDRATION [None]
  - EOSINOPHILIA [None]
  - INFLAMMATION [None]
  - NAUSEA [None]
  - PROTEINURIA [None]
  - RASH [None]
  - RASH MACULO-PAPULAR [None]
  - RENAL FAILURE ACUTE [None]
  - URINE OUTPUT DECREASED [None]
  - VOMITING [None]
  - WEIGHT DECREASED [None]
